FAERS Safety Report 16500573 (Version 1)
Quarter: 2019Q3

REPORT INFORMATION
  Report Type: Spontaneous
  Country: US (occurrence: US)
  Receive Date: 20190628
  Receipt Date: 20190628
  Transmission Date: 20191004
  Serious: No
  Sender: FDA-Public Use
  Company Number: None

PATIENT
  Age: 63 Year
  Sex: Female
  Weight: 72 kg

DRUGS (8)
  1. ALKA-SELTZER PLUS MULTI-SYMPTOM COLD AND COUGH [Suspect]
     Active Substance: ASPIRIN\CHLORPHENIRAMINE MALEATE\DEXTROMETHORPHAN HYDROBROMIDE\PHENYLEPHRINE BITARTRATE
     Indication: GASTRIC DISORDER
     Dosage: ?          QUANTITY:2 TABLET(S);?
     Route: 048
     Dates: start: 20190623, end: 20190623
  2. XFORGE HCT 5-160 [Concomitant]
  3. ALKA-SELTZER PLUS MULTI-SYMPTOM COLD AND COUGH [Suspect]
     Active Substance: ASPIRIN\CHLORPHENIRAMINE MALEATE\DEXTROMETHORPHAN HYDROBROMIDE\PHENYLEPHRINE BITARTRATE
     Indication: SINUS HEADACHE
     Dosage: ?          QUANTITY:2 TABLET(S);?
     Route: 048
     Dates: start: 20190623, end: 20190623
  4. ZYRTEC [Concomitant]
     Active Substance: CETIRIZINE HYDROCHLORIDE
  5. ANDREW LESSMAN ULTIMATE FRIENDLY FLORA [Concomitant]
  6. ANDREW LESSMAN ESSENTIAL 1 VITAMINS [Concomitant]
  7. ANDREW LESSMAN CO ENZYME Q-10 [Concomitant]
  8. ANDREW LESSMAN HEALTHY HAIR, SKIN + NAILS [Concomitant]

REACTIONS (2)
  - Anaphylactic reaction [None]
  - Recalled product [None]

NARRATIVE: CASE EVENT DATE: 20190623
